FAERS Safety Report 17235387 (Version 1)
Quarter: 2020Q1

REPORT INFORMATION
  Report Type: Spontaneous
  Country: US (occurrence: US)
  Receive Date: 20200103
  Receipt Date: 20200103
  Transmission Date: 20200409
  Serious: Yes (Hospitalization)
  Sender: FDA-Public Use
  Company Number: None

PATIENT
  Sex: Male

DRUGS (4)
  1. PROTONIX, AMLODIPINE, ABILIFY, NORVASC [Concomitant]
  2. MYCOPHENOLIC [Suspect]
     Active Substance: MYCOPHENOLIC ACID
     Indication: LIVER TRANSPLANT
     Route: 048
     Dates: start: 20151201
  3. TACROLIMUS, MAGNESIUM, LIPITOR [Concomitant]
  4. NEURONTIN, CYCLOBENZAPRINE [Concomitant]

REACTIONS (1)
  - Influenza [None]
